FAERS Safety Report 4554646-0 (Version None)
Quarter: 2005Q1

REPORT INFORMATION
  Report Type: 
  Country: None (occurrence: None)
  Receive Date: 20041228
  Receipt Date: 20040604
  Transmission Date: 20050727
  Serious: No
  Sender: FDA-Public Use
  Company Number: ALMO2004026

PATIENT
  Age: 48 Year
  Sex: Female

DRUGS (1)
  1. ALMOGRAN [Suspect]
     Dosage: 12.5 MG DAILY PO
     Route: 048

REACTIONS (1)
  - CHEST PAIN [None]
